FAERS Safety Report 6312468-4 (Version None)
Quarter: 2009Q3

REPORT INFORMATION
  Report Type: 
  Country: None (occurrence: None)
  Receive Date: 20090813
  Receipt Date: 20090731
  Transmission Date: 20100115
  Serious: Yes (Hospitalization)
  Sender: FDA-Public Use
  Company Number: IT-000673

PATIENT
  Age: 13 Year
  Sex: Female
  Weight: 68.8 kg

DRUGS (5)
  1. HUMAN GROWT H HORMONE, RECOMBINANT (RHGH) 0.033 MG/KG [Suspect]
     Indication: HYPOPITUITARISM
     Dosage: SUBCUTANEOUS, SUBCUTANEOUS
     Route: 058
     Dates: end: 20070201
  2. HUMAN GROWT H HORMONE, RECOMBINANT (RHGH) 0.033 MG/KG [Suspect]
     Indication: HYPOPITUITARISM
     Dosage: SUBCUTANEOUS, SUBCUTANEOUS
     Route: 058
     Dates: start: 20070801
  3. LEVOTHYROXINE SODIUM [Concomitant]
  4. HYDROCORTISONE [Concomitant]
  5. ANTIDIURETIC HORMONE [Concomitant]

REACTIONS (2)
  - PANCREATITIS ACUTE [None]
  - SPLENOMEGALY [None]
